FAERS Safety Report 8477630-3 (Version None)
Quarter: 2012Q2

REPORT INFORMATION
  Report Type: 
  Country: None (occurrence: None)
  Receive Date: 20120618
  Receipt Date: 20120608
  Transmission Date: 20120825
  Serious: Yes (Hospitalization, Other)
  Sender: FDA-Public Use
  Company Number: 2012SP013605

PATIENT
  Age: 59 Year
  Sex: Female
  Weight: 65 kg

DRUGS (22)
  1. PEG-INTRON [Suspect]
     Indication: HEPATITIS C
     Dosage: SEE IMAGE
     Route: 051
     Dates: start: 20120308, end: 20120322
  2. PEG-INTRON [Suspect]
     Indication: HEPATITIS C
     Dosage: SEE IMAGE
     Route: 051
     Dates: start: 20120329, end: 20120419
  3. PEG-INTRON [Suspect]
     Indication: HEPATITIS C
     Dosage: SEE IMAGE
     Route: 051
     Dates: start: 20120510, end: 20120516
  4. PEG-INTRON [Suspect]
     Indication: HEPATITIS C
     Dosage: SEE IMAGE
     Route: 051
     Dates: start: 20120301, end: 20120301
  5. PEG-INTRON [Suspect]
     Indication: HEPATITIS C
     Dosage: SEE IMAGE
     Route: 051
     Dates: start: 20120517
  6. PEG-INTRON [Suspect]
     Indication: HEPATITIS C
     Dosage: SEE IMAGE
     Route: 051
     Dates: start: 20120221, end: 20120221
  7. MOTILIUM [Concomitant]
  8. ALLEGRA [Concomitant]
  9. ZOLPIDEM [Concomitant]
  10. TELAVIC (ANTIVIRALS NOS) [Suspect]
     Indication: HEPATITIS C
     Dosage: 2250 MG;QD;PO ; 750 MG;QD;PO ; 1500 MG;QD;PO ; 250 MG;QD;PO
     Route: 048
     Dates: start: 20120302, end: 20120307
  11. TELAVIC (ANTIVIRALS NOS) [Suspect]
     Indication: HEPATITIS C
     Dosage: 2250 MG;QD;PO ; 750 MG;QD;PO ; 1500 MG;QD;PO ; 250 MG;QD;PO
     Route: 048
     Dates: start: 20120308, end: 20120412
  12. TELAVIC (ANTIVIRALS NOS) [Suspect]
     Indication: HEPATITIS C
     Dosage: 2250 MG;QD;PO ; 750 MG;QD;PO ; 1500 MG;QD;PO ; 250 MG;QD;PO
     Route: 048
     Dates: start: 20120221, end: 20120225
  13. PROMACTA [Concomitant]
  14. REBETOL [Suspect]
     Indication: HEPATITIS C
     Dosage: SEE IMAGE
     Route: 048
     Dates: start: 20120521
  15. REBETOL [Suspect]
     Indication: HEPATITIS C
     Dosage: SEE IMAGE
     Route: 048
     Dates: start: 20120229, end: 20120307
  16. REBETOL [Suspect]
     Indication: HEPATITIS C
     Dosage: SEE IMAGE
     Route: 048
     Dates: start: 20120308, end: 20120404
  17. REBETOL [Suspect]
     Indication: HEPATITIS C
     Dosage: SEE IMAGE
     Route: 048
     Dates: start: 20120228, end: 20120228
  18. REBETOL [Suspect]
     Indication: HEPATITIS C
     Dosage: SEE IMAGE
     Route: 048
     Dates: start: 20120405, end: 20120412
  19. REBETOL [Suspect]
     Indication: HEPATITIS C
     Dosage: SEE IMAGE
     Route: 048
     Dates: start: 20120514, end: 20120521
  20. REBETOL [Suspect]
     Indication: HEPATITIS C
     Dosage: SEE IMAGE
     Route: 048
     Dates: start: 20120221, end: 20120225
  21. REBAMIPIDE [Concomitant]
  22. LOXONIN [Concomitant]

REACTIONS (9)
  - GAIT DISTURBANCE [None]
  - HALLUCINATIONS, MIXED [None]
  - SOMNOLENCE [None]
  - ERYTHEMA [None]
  - DYSARTHRIA [None]
  - DELIRIUM [None]
  - RASH ERYTHEMATOUS [None]
  - OEDEMA PERIPHERAL [None]
  - HYPOALBUMINAEMIA [None]
